FAERS Safety Report 16299725 (Version 3)
Quarter: 2019Q2

REPORT INFORMATION
  Report Type: Spontaneous
  Country: IT (occurrence: IT)
  Receive Date: 20190510
  Receipt Date: 20190627
  Transmission Date: 20190711
  Serious: Yes (Other)
  Sender: FDA-Public Use
  Company Number: IT-ACCORD-126875

PATIENT
  Age: 80 Year
  Sex: Male
  Weight: 77 kg

DRUGS (3)
  1. CAPECITABINE. [Suspect]
     Active Substance: CAPECITABINE
     Indication: ADENOCARCINOMA OF COLON
     Route: 048
     Dates: start: 20181115
  2. AVASTIN [Suspect]
     Active Substance: BEVACIZUMAB
     Indication: ADENOCARCINOMA OF COLON
     Dosage: STRENGTH: 25 MG/ML
     Route: 042
     Dates: start: 20181115
  3. OXALIPLATIN. [Suspect]
     Active Substance: OXALIPLATIN
     Indication: ADENOCARCINOMA OF COLON
     Route: 042
     Dates: start: 20181115

REACTIONS (5)
  - Thrombocytopenia [Recovering/Resolving]
  - Epistaxis [Recovering/Resolving]
  - Diarrhoea [Recovering/Resolving]
  - Back pain [Recovering/Resolving]
  - Proteinuria [Recovering/Resolving]

NARRATIVE: CASE EVENT DATE: 20190102
